FAERS Safety Report 17848501 (Version 1)
Quarter: 2020Q2

REPORT INFORMATION
  Report Type: Spontaneous
  Country: IT (occurrence: IT)
  Receive Date: 20200602
  Receipt Date: 20200602
  Transmission Date: 20200714
  Serious: Yes (Other)
  Sender: FDA-Public Use
  Company Number: IT-CELLTRION INC.-2020IT022692

PATIENT

DRUGS (5)
  1. RITUXIMAB (UNKNOWN) [Suspect]
     Active Substance: RITUXIMAB
     Indication: DISEASE RECURRENCE
  2. RITUXIMAB (UNKNOWN) [Suspect]
     Active Substance: RITUXIMAB
     Indication: PURPURA
  3. RITUXIMAB (UNKNOWN) [Suspect]
     Active Substance: RITUXIMAB
     Indication: HENOCH-SCHONLEIN PURPURA
     Dosage: 375 MG/M2/WEEK (4 WEEKLY DOSE)
  4. RITUXIMAB (UNKNOWN) [Suspect]
     Active Substance: RITUXIMAB
     Indication: GLOMERULONEPHRITIS
     Dosage: 500 MG, EVERY 6 MONTHS; MAINTENANCE DOSE DUE TO RELAPSING PURPURA
  5. RITUXIMAB (UNKNOWN) [Suspect]
     Active Substance: RITUXIMAB
     Indication: NEPHRITIS
     Dosage: RTX 2 YEARS MAINTENANCE THERAPY

REACTIONS (4)
  - Drug effective for unapproved indication [Unknown]
  - Disease recurrence [Unknown]
  - Henoch-Schonlein purpura nephritis [Unknown]
  - Off label use [Unknown]
